FAERS Safety Report 4889734-2 (Version None)
Quarter: 2006Q1

REPORT INFORMATION
  Report Type: 
  Country: None (occurrence: None)
  Receive Date: 20060124
  Receipt Date: 20050325
  Transmission Date: 20060701
  Serious: Yes (Hospitalization, Disabling)
  Sender: FDA-Public Use
  Company Number: US-MERCK-0503USA05005

PATIENT
  Age: 61 Year
  Sex: Female
  Weight: 65 kg

DRUGS (5)
  1. VIOXX [Suspect]
     Indication: PSORIATIC ARTHROPATHY
     Route: 048
     Dates: start: 20010827, end: 20030324
  2. VIOXX [Suspect]
     Route: 048
  3. VIOXX [Suspect]
     Indication: PAIN
     Route: 048
     Dates: start: 20010827, end: 20030324
  4. VIOXX [Suspect]
     Route: 048
  5. METHOTREXATE [Suspect]
     Route: 065

REACTIONS (16)
  - ANAEMIA [None]
  - CARDIAC FAILURE CONGESTIVE [None]
  - DEEP VEIN THROMBOSIS [None]
  - DEHYDRATION [None]
  - DIARRHOEA [None]
  - DRY MOUTH [None]
  - EPISTAXIS [None]
  - HYPERTENSION [None]
  - MUCOSAL INFLAMMATION [None]
  - NASAL ULCER [None]
  - ONYCHOMYCOSIS [None]
  - PANCYTOPENIA [None]
  - POLYARTHRITIS [None]
  - REFLUX OESOPHAGITIS [None]
  - RENAL FAILURE [None]
  - SINUS BRADYCARDIA [None]
